FAERS Safety Report 8187861-8 (Version None)
Quarter: 2012Q1

REPORT INFORMATION
  Report Type: 
  Country: None (occurrence: None)
  Receive Date: 20120302
  Receipt Date: 20120220
  Transmission Date: 20120608
  Serious: Yes (Hospitalization, Other)
  Sender: FDA-Public Use
  Company Number: 2012SP009606

PATIENT
  Sex: Female

DRUGS (2)
  1. RIBAVIRIN [Suspect]
     Indication: HEPATITIS C
     Dates: start: 20120208
  2. PEG-INTRON [Suspect]
     Indication: HEPATITIS C
     Dates: start: 20120208

REACTIONS (4)
  - FAECAL VOMITING [None]
  - CONFUSIONAL STATE [None]
  - DEHYDRATION [None]
  - DRY EYE [None]
